FAERS Safety Report 16127465 (Version 1)
Quarter: 2019Q1

REPORT INFORMATION
  Report Type: Spontaneous
  Country: US (occurrence: US)
  Receive Date: 20190328
  Receipt Date: 20190328
  Transmission Date: 20190418
  Serious: No
  Sender: FDA-Public Use
  Company Number: US-PFIZER INC-2019125523

PATIENT
  Age: 50 Year
  Sex: Male
  Weight: 129.27 kg

DRUGS (1)
  1. VIAGRA [Suspect]
     Active Substance: SILDENAFIL CITRATE
     Indication: ERECTILE DYSFUNCTION
     Dosage: 50 MG, DAILY AS NEEDED
     Dates: start: 20190130

REACTIONS (1)
  - Drug effect incomplete [Not Recovered/Not Resolved]
